FAERS Safety Report 4873201-6 (Version None)
Quarter: 2006Q1

REPORT INFORMATION
  Report Type: 
  Country: None (occurrence: None)
  Receive Date: 20060105
  Receipt Date: 20051228
  Transmission Date: 20060701
  Serious: Yes (Other)
  Sender: FDA-Public Use
  Company Number: PHBS2005BR19106

PATIENT
  Age: 45 Year
  Sex: Female
  Weight: 55 kg

DRUGS (5)
  1. FENYTOIN [Concomitant]
     Indication: CONVULSION
     Dosage: 300 MG/DAY
     Route: 048
     Dates: start: 20050801
  2. DIPIRONA [Concomitant]
     Indication: PYREXIA
     Dosage: 40 DROPS
     Route: 048
     Dates: start: 20050801
  3. IBUPROFEN [Concomitant]
     Indication: PYREXIA
     Dosage: 45 DROPS
     Route: 048
     Dates: start: 20050901
  4. LIORESAL [Suspect]
     Indication: MUSCLE RELAXANT THERAPY
     Dosage: 5 MG, Q6H
     Route: 048
     Dates: start: 20051201
  5. LIORESAL [Suspect]
     Dosage: 7.5 MG, Q6H
     Route: 048

REACTIONS (3)
  - DRUG INEFFECTIVE [None]
  - URINARY TRACT INFECTION [None]
  - VOMITING [None]
